FAERS Safety Report 10067975 (Version 4)
Quarter: 2014Q2

REPORT INFORMATION
  Report Type: Spontaneous
  Country: ES (occurrence: ES)
  Receive Date: 20140409
  Receipt Date: 20140505
  Transmission Date: 20141212
  Serious: Yes (Death, Hospitalization)
  Sender: FDA-Public Use
  Company Number: ES-PFIZER INC-2014096263

PATIENT
  Age: 60 Year
  Sex: Female

DRUGS (3)
  1. LYRICA [Suspect]
     Indication: COMPLETED SUICIDE
     Dosage: UNK
     Route: 048
     Dates: start: 20130504, end: 20130504
  2. VENLAFAXINE HCL [Interacting]
     Indication: COMPLETED SUICIDE
     Dosage: UNK
     Route: 048
     Dates: start: 20130504, end: 20130504
  3. SEROQUEL [Interacting]
     Indication: COMPLETED SUICIDE
     Dosage: UNK
     Route: 048
     Dates: start: 20130504, end: 20130504

REACTIONS (6)
  - Completed suicide [Fatal]
  - Poisoning [Fatal]
  - Drug interaction [Fatal]
  - Multi-organ failure [Fatal]
  - Status epilepticus [Fatal]
  - Cardiogenic shock [Fatal]
